FAERS Safety Report 19861076 (Version 1)
Quarter: 2021Q3

REPORT INFORMATION
  Report Type: Spontaneous
  Country: US (occurrence: US)
  Receive Date: 20210921
  Receipt Date: 20210921
  Transmission Date: 20211014
  Serious: Yes (Hospitalization)
  Sender: FDA-Public Use
  Company Number: None

PATIENT

DRUGS (1)
  1. HUMIRA [Suspect]
     Active Substance: ADALIMUMAB
     Dosage: ?          OTHER FREQUENCY:EVERY 2 WEEKS;?
     Route: 058

REACTIONS (6)
  - Feeling abnormal [None]
  - Aphasia [None]
  - Hypertension [None]
  - Liver function test abnormal [None]
  - Paraesthesia oral [None]
  - Mental impairment [None]

NARRATIVE: CASE EVENT DATE: 20210919
